FAERS Safety Report 5362268-7 (Version None)
Quarter: 2007Q2

REPORT INFORMATION
  Report Type: 
  Country: None (occurrence: None)
  Receive Date: 20070619
  Receipt Date: 20070608
  Transmission Date: 20071010
  Serious: Yes (Other)
  Sender: FDA-Public Use
  Company Number: US-ELI_LILLY_AND_COMPANY-US200706001914

PATIENT
  Age: 60 Year
  Sex: Female

DRUGS (3)
  1. HUMALOG [Suspect]
     Dosage: UNK, AS NEEDED
     Dates: start: 20060901
  2. LANTUS [Concomitant]
     Dosage: UNK, EACH EVENING
  3. THYROID TAB [Concomitant]
     Indication: THYROID DISORDER

REACTIONS (3)
  - BLOOD GLUCOSE INCREASED [None]
  - BREAST CANCER [None]
  - DRUG INEFFECTIVE [None]
